FAERS Safety Report 7056574-8 (Version None)
Quarter: 2010Q4

REPORT INFORMATION
  Report Type: 
  Country: None (occurrence: None)
  Receive Date: 20101018
  Receipt Date: 20100930
  Transmission Date: 20110411
  Serious: Yes (Hospitalization)
  Sender: FDA-Public Use
  Company Number: 1000016684

PATIENT
  Age: 78 Year
  Sex: Female

DRUGS (10)
  1. CITALOPRAM HYDROBROMIDE [Suspect]
     Dosage: 0.5 DOSAGE FORMS (0.5 DOSAGE FORMS, 1 IN 1 D), ORAL
     Route: 048
     Dates: start: 20100801, end: 20100816
  2. CLOZAPINE [Suspect]
     Dosage: 1 DOSAGE FORMS (1 DOSAGE FORMS, 1 IN 1 D), ORAL
     Route: 048
     Dates: end: 20100807
  3. CLOZAPINE [Suspect]
     Dosage: 1.5 DOSAGE FORMS (1.5 MG, 1 IN 1 D), ORAL; 0.5 DOSAGE FORMS (0.5 DOSAGE FORMS, 1 IN 1 D), ORAL
     Route: 048
     Dates: start: 20100808, end: 20100815
  4. CLOZAPINE [Suspect]
     Dosage: 1.5 DOSAGE FORMS (1.5 MG, 1 IN 1 D), ORAL; 0.5 DOSAGE FORMS (0.5 DOSAGE FORMS, 1 IN 1 D), ORAL
     Route: 048
     Dates: start: 20100816
  5. COTAREG (VALSARTAN, HYDROCHLOROTHIAZIDE) (VALSARTAN, HYDROCHLOROTHIAZI [Concomitant]
  6. MODOPAR (BENSERAZIDE HYDROCHLORIDE, LEVODOPA) (BENSERAZIDE HYDROCHLORI [Concomitant]
  7. FLODIL (FELODIPINE) (FELODIPINE) [Concomitant]
  8. FORLAX (MACROGOL) (MACROGOL) [Concomitant]
  9. EXELON (RIVASTIGMINE) (RIVASTIGMINE) [Concomitant]
  10. RIVOTRIL (CLONAZEPAM) (CLONAZEPAM) [Concomitant]

REACTIONS (3)
  - AGITATION [None]
  - HALLUCINATION [None]
  - TONIC CLONIC MOVEMENTS [None]
